FAERS Safety Report 6999152-9 (Version None)
Quarter: 2010Q3

REPORT INFORMATION
  Report Type: 
  Country: None (occurrence: None)
  Receive Date: 20100920
  Receipt Date: 20100607
  Transmission Date: 20110219
  Serious: No
  Sender: FDA-Public Use
  Company Number: US-ASTRAZENECA-2010SE08340

PATIENT
  Sex: Female

DRUGS (1)
  1. SEROQUEL [Suspect]
     Dosage: 400 MG TWO TABLETS AT BED TIME
     Route: 048

REACTIONS (3)
  - DRUG DISPENSING ERROR [None]
  - DRUG DOSE OMISSION [None]
  - SLEEP DISORDER [None]
